FAERS Safety Report 9391789 (Version 1)
Quarter: 2013Q3

REPORT INFORMATION
  Report Type: Spontaneous
  Country: US (occurrence: US)
  Receive Date: 20130709
  Receipt Date: 20130709
  Transmission Date: 20140515
  Serious: Yes (Other)
  Sender: FDA-Public Use
  Company Number: PHEH2013US014378

PATIENT
  Sex: Male

DRUGS (2)
  1. EXFORGE HCT [Suspect]
     Dosage: 1 DF, (320/10/25 MG) QD
     Route: 048
  2. METOPROLOL [Concomitant]
     Dosage: UNK UKN, UNK

REACTIONS (3)
  - Sinus disorder [Unknown]
  - Eye disorder [Unknown]
  - Blindness [Unknown]
